FAERS Safety Report 4358695-7 (Version None)
Quarter: 2004Q2

REPORT INFORMATION
  Report Type: 
  Country: None (occurrence: None)
  Receive Date: 20040511
  Receipt Date: 20040428
  Transmission Date: 20050107
  Serious: Yes (Other)
  Sender: FDA-Public Use
  Company Number: 2004028868

PATIENT
  Age: 38 Year
  Sex: Male

DRUGS (1)
  1. PROCARDIA XL [Suspect]
     Indication: ILL-DEFINED DISORDER
     Dosage: ORAL
     Route: 048

REACTIONS (4)
  - HAEMODIALYSIS [None]
  - LOSS OF EMPLOYMENT [None]
  - RENAL FAILURE [None]
  - RENAL TRANSPLANT [None]
